FAERS Safety Report 8048281-X (Version None)
Quarter: 2012Q1

REPORT INFORMATION
  Report Type: 
  Country: None (occurrence: None)
  Receive Date: 20120111
  Receipt Date: 20111230
  Transmission Date: 20120608
  Serious: Yes (Hospitalization)
  Sender: FDA-Public Use
  Company Number: MPS1-1000622

PATIENT
  Age: 19 Year
  Sex: Male
  Weight: 37.4 kg

DRUGS (7)
  1. FLONASE [Concomitant]
  2. ALDURAZYME [Suspect]
     Indication: MUCOPOLYSACCHARIDOSIS I
     Dosage: 20.3 MG, QW, INTRAVENOUS
     Route: 042
     Dates: start: 20060713
  3. SENNA-MINT WAF [Concomitant]
  4. ADVAIR HFA [Concomitant]
  5. ACETAMINOPHEN [Concomitant]
  6. ALBUTEROL [Concomitant]
  7. VENTOLIN [Concomitant]

REACTIONS (3)
  - OTORRHOEA [None]
  - STATUS ASTHMATICUS [None]
  - PNEUMONIA [None]
